FAERS Safety Report 5424699-6 (Version None)
Quarter: 2007Q3

REPORT INFORMATION
  Report Type: 
  Country: None (occurrence: None)
  Receive Date: 20070822
  Receipt Date: 20070822
  Transmission Date: 20080115
  Serious: Yes (Other)
  Sender: FDA-Public Use
  Company Number: None

PATIENT
  Sex: Female
  Weight: 72.5755 kg

DRUGS (3)
  1. BUSPIRONE HCL [Suspect]
     Indication: PANIC ATTACK
     Dosage: 10MG 3 PER DAY ORAL
     Route: 048
     Dates: start: 20070601, end: 20070630
  2. WELLBUTRIN [Concomitant]
  3. IMITREX [Concomitant]

REACTIONS (4)
  - CONDITION AGGRAVATED [None]
  - DRUG EFFECT DECREASED [None]
  - PANIC ATTACK [None]
  - PHARMACEUTICAL PRODUCT COMPLAINT [None]
